FAERS Safety Report 15383975 (Version 1)
Quarter: 2018Q3

REPORT INFORMATION
  Report Type: Spontaneous
  Country: ES (occurrence: ES)
  Receive Date: 20180914
  Receipt Date: 20180914
  Transmission Date: 20181010
  Serious: Yes (Other)
  Sender: FDA-Public Use
  Company Number: ES-SUN PHARMACEUTICAL INDUSTRIES LTD-2018RR-184316

PATIENT
  Age: 33 Year
  Sex: Male

DRUGS (5)
  1. CARBAMAZEPINE. [Interacting]
     Active Substance: CARBAMAZEPINE
     Indication: BIPOLAR I DISORDER
     Dosage: UNK
     Route: 065
  2. OLANZAPINE. [Suspect]
     Active Substance: OLANZAPINE
     Indication: BIPOLAR I DISORDER
     Dosage: UNK
     Route: 065
  3. CLONAZEPAM. [Interacting]
     Active Substance: CLONAZEPAM
     Indication: BIPOLAR I DISORDER
     Dosage: UNK
     Route: 065
  4. LITHIUM. [Interacting]
     Active Substance: LITHIUM
     Indication: BIPOLAR I DISORDER
     Dosage: MAINTAINED AT 1600 MG/DAY
     Route: 065
  5. PALIPERIDONE. [Interacting]
     Active Substance: PALIPERIDONE
     Indication: BIPOLAR I DISORDER
     Dosage: UNK
     Route: 065

REACTIONS (4)
  - Sedation [Recovering/Resolving]
  - Weight increased [Recovering/Resolving]
  - Drug ineffective [Unknown]
  - Drug interaction [Unknown]
